FAERS Safety Report 16565003 (Version 1)
Quarter: 2019Q3

REPORT INFORMATION
  Report Type: Spontaneous
  Country: FR (occurrence: FR)
  Receive Date: 20190712
  Receipt Date: 20190712
  Transmission Date: 20191004
  Serious: Yes (Hospitalization)
  Sender: FDA-Public Use
  Company Number: PHHY2019FR158638

PATIENT
  Age: 56 Year
  Sex: Male
  Weight: 82 kg

DRUGS (3)
  1. VOLTARENE (DICLOFENAC SODIUM) [Suspect]
     Active Substance: DICLOFENAC SODIUM
     Indication: INTERVERTEBRAL DISC PROTRUSION
     Dosage: 2 DF, (TOTAL)
     Route: 048
     Dates: start: 20190429, end: 20190429
  2. NUROFEN [Suspect]
     Active Substance: IBUPROFEN
     Indication: DENTAL CARIES
     Dosage: 1 DF, (TOTAL)
     Route: 048
     Dates: start: 20190429, end: 20190429
  3. VOLTARENE EMULGEL [Suspect]
     Active Substance: DICLOFENAC DIETHYLAMINE
     Indication: INTERVERTEBRAL DISC PROTRUSION
     Dosage: NP
     Route: 003

REACTIONS (3)
  - Ulcer [Not Recovered/Not Resolved]
  - Rectal haemorrhage [Recovered/Resolved]
  - Abdominal pain [Recovered/Resolved]

NARRATIVE: CASE EVENT DATE: 20190430
